FAERS Safety Report 24178142 (Version 4)
Quarter: 2024Q4

REPORT INFORMATION
  Report Type: Spontaneous
  Country: ES (occurrence: ES)
  Receive Date: 20240806
  Receipt Date: 20241129
  Transmission Date: 20250114
  Serious: Yes (Other)
  Sender: AUROBINDO
  Company Number: ES-ELI_LILLY_AND_COMPANY-ES202402013313

PATIENT
  Age: 43 Year
  Sex: Female

DRUGS (8)
  1. LETROZOLE [Suspect]
     Active Substance: LETROZOLE
     Indication: Breast cancer
     Dosage: UNK
     Route: 065
     Dates: start: 20240111
  2. PREGABALIN [Suspect]
     Active Substance: PREGABALIN
     Indication: Product used for unknown indication
     Dosage: UNK
     Route: 065
  3. ABEMACICLIB [Suspect]
     Active Substance: ABEMACICLIB
     Indication: Breast cancer
     Dosage: 150 MILLIGRAM
     Route: 048
     Dates: start: 202401, end: 20240212
  4. ABEMACICLIB [Suspect]
     Active Substance: ABEMACICLIB
     Dosage: 150 MILLIGRAM
     Route: 048
     Dates: start: 20240229, end: 20240303
  5. ABEMACICLIB [Suspect]
     Active Substance: ABEMACICLIB
     Dosage: 100 MILLIGRAM
     Route: 048
  6. ABEMACICLIB [Suspect]
     Active Substance: ABEMACICLIB
     Dosage: 150 MILLIGRAM
     Route: 048
     Dates: start: 20240304
  7. ABEMACICLIB [Suspect]
     Active Substance: ABEMACICLIB
     Dosage: 100 MILLIGRAM
     Route: 048
     Dates: start: 20240327
  8. GOSERELIN [Suspect]
     Active Substance: GOSERELIN
     Indication: Breast cancer
     Dosage: 10 MILLIGRAM, OTHER (EVERY 3 MONTHS)
     Route: 058

REACTIONS (45)
  - Choking [Recovering/Resolving]
  - Muscle spasms [Unknown]
  - Wound [Unknown]
  - Hyperphagia [Recovered/Resolved]
  - Dizziness postural [Recovering/Resolving]
  - Decreased immune responsiveness [Recovering/Resolving]
  - Alanine aminotransferase increased [Recovering/Resolving]
  - Gait disturbance [Unknown]
  - Bone pain [Recovering/Resolving]
  - Fatigue [Recovering/Resolving]
  - Abdominal pain [Recovering/Resolving]
  - Weight decreased [Recovering/Resolving]
  - Neutrophil count decreased [Recovering/Resolving]
  - Decreased appetite [Recovered/Resolved]
  - Hypotension [Recovered/Resolved]
  - Diarrhoea [Recovered/Resolved]
  - Taste disorder [Recovering/Resolving]
  - Nausea [Recovered/Resolved]
  - Faeces soft [Recovering/Resolving]
  - Constipation [Recovering/Resolving]
  - Dry skin [Recovering/Resolving]
  - Dry eye [Recovering/Resolving]
  - Nasal dryness [Recovering/Resolving]
  - Scab [Recovering/Resolving]
  - Abdominal discomfort [Recovering/Resolving]
  - Glomerular filtration rate decreased [Recovering/Resolving]
  - Rhinalgia [Recovering/Resolving]
  - White blood cell count decreased [Recovering/Resolving]
  - Haemoglobin decreased [Unknown]
  - Hot flush [Recovering/Resolving]
  - Cold sweat [Recovering/Resolving]
  - Feeling abnormal [Recovering/Resolving]
  - Nervousness [Unknown]
  - Sleep disorder due to general medical condition, insomnia type [Recovering/Resolving]
  - Dry mouth [Recovering/Resolving]
  - Dry throat [Recovering/Resolving]
  - Dysphagia [Recovering/Resolving]
  - Stress [Recovering/Resolving]
  - Nasal discomfort [Recovering/Resolving]
  - Abdominal distension [Recovering/Resolving]
  - Haematocrit decreased [Recovering/Resolving]
  - Dysbiosis [Recovering/Resolving]
  - Irritable bowel syndrome [Recovering/Resolving]
  - Gluten sensitivity [Recovering/Resolving]
  - Anaemia [Recovering/Resolving]

NARRATIVE: CASE EVENT DATE: 20240101
